FAERS Safety Report 8437331-4 (Version None)
Quarter: 2012Q2

REPORT INFORMATION
  Report Type: 
  Country: None (occurrence: None)
  Receive Date: 20120614
  Receipt Date: 20120308
  Transmission Date: 20120825
  Serious: No
  Sender: FDA-Public Use
  Company Number: US-AMGEN-USASP2012009298

PATIENT
  Age: 67 Year
  Sex: Female
  Weight: 56.689 kg

DRUGS (6)
  1. LISINOPRIL [Concomitant]
     Dosage: UNK
  2. VITAMIN D [Concomitant]
  3. CITRICAL                           /00751501/ [Concomitant]
  4. PROLIA [Suspect]
     Indication: OSTEOPOROSIS
     Dosage: UNK UNK, Q6MO
     Dates: start: 20110804
  5. LIPITOR [Concomitant]
     Dosage: UNK
  6. SYNTHROID [Concomitant]
     Dosage: UNK

REACTIONS (6)
  - ECZEMA [None]
  - ONYCHOMYCOSIS [None]
  - RASH [None]
  - CYSTITIS [None]
  - SKIN HYPERPIGMENTATION [None]
  - PSORIASIS [None]
